FAERS Safety Report 8120134-8 (Version None)
Quarter: 2012Q1

REPORT INFORMATION
  Report Type: 
  Country: None (occurrence: None)
  Receive Date: 20120207
  Receipt Date: 20120126
  Transmission Date: 20120608
  Serious: Yes (Other)
  Sender: FDA-Public Use
  Company Number: US-JNJFOC-20120113587

PATIENT
  Sex: Male
  Weight: 13.61 kg

DRUGS (3)
  1. EXTRA STRENGTH TYLENOL [Suspect]
     Indication: RHINORRHOEA
     Dosage: TWO TABLETS Q4-5 HOURS X3
     Route: 065
     Dates: start: 20120125, end: 20120126
  2. EXTRA STRENGTH TYLENOL [Suspect]
     Indication: COUGH
     Dosage: TWO TABLETS Q4-5 HOURS X3
     Route: 065
     Dates: start: 20120125, end: 20120126
  3. EXTRA STRENGTH TYLENOL [Suspect]
     Indication: OROPHARYNGEAL PAIN
     Dosage: TWO TABLETS Q4-5 HOURS X3
     Route: 065
     Dates: start: 20120125, end: 20120126

REACTIONS (6)
  - INCORRECT DRUG DOSAGE FORM ADMINISTERED [None]
  - ACCIDENTAL OVERDOSE [None]
  - ABNORMAL BEHAVIOUR [None]
  - ORAL PAIN [None]
  - PRODUCT PACKAGING ISSUE [None]
  - GLOSSODYNIA [None]
